FAERS Safety Report 21606848 (Version 4)
Quarter: 2023Q1

REPORT INFORMATION
  Report Type: Spontaneous
  Country: JP (occurrence: JP)
  Receive Date: 20221117
  Receipt Date: 20230302
  Transmission Date: 20230417
  Serious: Yes (Death, Other)
  Sender: FDA-Public Use
  Company Number: JP-MSD-2211JPN000929JAA

PATIENT
  Age: 77 Year
  Sex: Male

DRUGS (1)
  1. KEYTRUDA [Suspect]
     Active Substance: PEMBROLIZUMAB
     Indication: Pancreatic carcinoma stage IV
     Dosage: 200 MILLIGRAM, Q3W
     Route: 065
     Dates: start: 20191210

REACTIONS (1)
  - Malignant neoplasm progression [Fatal]
